FAERS Safety Report 5719535-4 (Version None)
Quarter: 2008Q2

REPORT INFORMATION
  Report Type: 
  Country: None (occurrence: None)
  Receive Date: 20080428
  Receipt Date: 20080424
  Transmission Date: 20081010
  Serious: Yes (Other)
  Sender: FDA-Public Use
  Company Number: B0518318A

PATIENT
  Age: 44 Year
  Sex: Female

DRUGS (2)
  1. NICABATE CQ 4MG GUM [Suspect]
     Indication: SMOKING CESSATION THERAPY
     Dosage: 1GUM PER DAY
     Route: 048
     Dates: start: 20080422, end: 20080422
  2. FLIXOTIDE [Concomitant]

REACTIONS (1)
  - ASTHMA [None]
